FAERS Safety Report 6238204-8 (Version None)
Quarter: 2009Q2

REPORT INFORMATION
  Report Type: 
  Country: None (occurrence: None)
  Receive Date: 20090622
  Receipt Date: 20090521
  Transmission Date: 20091009
  Serious: No
  Sender: FDA-Public Use
  Company Number: US-BAYER-200921553NA

PATIENT
  Sex: Male

DRUGS (5)
  1. CIPRO [Suspect]
     Indication: DRUG USE FOR UNKNOWN INDICATION
     Dates: start: 20090131
  2. CIPRO [Suspect]
     Dates: start: 20090101
  3. ADDERALL 10 [Concomitant]
  4. VICODIN [Concomitant]
  5. ANTIDEPRESSANTS [Concomitant]

REACTIONS (2)
  - AGITATION [None]
  - ANXIETY [None]
